FAERS Safety Report 22058226 (Version 1)
Quarter: 2023Q1

REPORT INFORMATION
  Report Type: Spontaneous
  Country: US (occurrence: US)
  Receive Date: 20230303
  Receipt Date: 20230303
  Transmission Date: 20230418
  Serious: No
  Sender: FDA-Public Use
  Company Number: US-GSKCCFUS-Case-01637665_AE-92455

PATIENT
  Sex: Female

DRUGS (6)
  1. INCRUSE ELLIPTA [Suspect]
     Active Substance: UMECLIDINIUM BROMIDE
     Indication: Chronic obstructive pulmonary disease
     Dosage: 1 PUFF(S), QD
     Route: 055
  2. INCRUSE ELLIPTA [Suspect]
     Active Substance: UMECLIDINIUM BROMIDE
     Indication: Asthma
  3. HYDROXYZINE [Suspect]
     Active Substance: HYDROXYZINE HYDROCHLORIDE
     Indication: Product used for unknown indication
     Dosage: UNK, 10 TO 30 MG AS NEEDED
  4. SPIRIVA [Concomitant]
     Active Substance: TIOTROPIUM BROMIDE MONOHYDRATE
     Indication: Product used for unknown indication
     Dosage: UNK
  5. ASPIRIN [Concomitant]
     Active Substance: ASPIRIN
     Indication: Product used for unknown indication
     Dosage: UNK
  6. ALBUTEROL SULFATE [Concomitant]
     Active Substance: ALBUTEROL SULFATE
     Indication: Product used for unknown indication
     Dosage: UNK

REACTIONS (4)
  - Dyspnoea [Unknown]
  - Therapy interrupted [Unknown]
  - Drug ineffective [Unknown]
  - Labelled drug-drug interaction medication error [Unknown]
